FAERS Safety Report 7545191-9 (Version None)
Quarter: 2011Q2

REPORT INFORMATION
  Report Type: 
  Country: None (occurrence: None)
  Receive Date: 20110614
  Receipt Date: 20110606
  Transmission Date: 20111010
  Serious: Yes (Hospitalization, Other)
  Sender: FDA-Public Use
  Company Number: ES-ELI_LILLY_AND_COMPANY-ES201106001484

PATIENT
  Sex: Female
  Weight: 88 kg

DRUGS (12)
  1. RIVASTIGMINE TARTRATE [Concomitant]
     Indication: NERVOUS SYSTEM DISORDER
     Dosage: UNK, QD
     Route: 062
  2. SPIRIVA [Concomitant]
     Indication: RESPIRATORY DISORDER
     Dosage: 18 MG, QD
     Route: 048
  3. SINVASTATINA [Concomitant]
     Indication: HYPERCHOLESTEROLAEMIA
     Dosage: 20 MG, QD
     Route: 048
  4. ONBREZ [Concomitant]
     Indication: RESPIRATORY DISORDER
     Dosage: 150 MG, QD
     Route: 048
  5. ACETILCISTEINA [Concomitant]
     Indication: RESPIRATORY DISORDER
     Dosage: 600 MG, BID
     Route: 048
  6. FORTEO [Suspect]
     Indication: OSTEOPOROSIS
     Dosage: 20 UG, QD
     Route: 058
     Dates: start: 20100612, end: 20110428
  7. DURAGESIC-100 [Concomitant]
     Indication: PAIN
     Dosage: 50 MG, OTHER(3 DAYS)
     Route: 062
  8. LOSARTAN POTASSIUM [Concomitant]
     Indication: HYPERTENSION
     Dosage: 20 MG, QD
     Route: 048
  9. LYRICA [Concomitant]
     Dosage: 150 MG, BID
     Route: 048
  10. TRIPTIZOL [Concomitant]
     Indication: PAIN
     Dosage: 25 MG, QD
     Route: 048
  11. SEDOTIME [Concomitant]
     Indication: ANXIETY
     Dosage: 30 MG, QD
     Route: 048
  12. FORTEO [Suspect]
     Dosage: 20 UG, QD
     Route: 058
     Dates: start: 20110510

REACTIONS (1)
  - CARDIOPULMONARY FAILURE [None]
